FAERS Safety Report 6491575-X (Version None)
Quarter: 2009Q4

REPORT INFORMATION
  Report Type: 
  Country: None (occurrence: None)
  Receive Date: 20091211
  Receipt Date: 20091208
  Transmission Date: 20100525
  Serious: Yes (Life-Threatening)
  Sender: FDA-Public Use
  Company Number: FR-GILEAD-2009-0025890

PATIENT
  Sex: Male

DRUGS (4)
  1. TRUVADA [Suspect]
     Indication: HIV INFECTION
     Route: 048
     Dates: start: 20071123
  2. INVIRASE [Suspect]
     Route: 048
     Dates: start: 20071123
  3. NORVIR [Suspect]
     Route: 048
     Dates: start: 20071123
  4. BARACLUDE [Suspect]
     Indication: HEPATITIS B
     Dates: start: 20071123

REACTIONS (2)
  - DEPRESSION [None]
  - SUICIDE ATTEMPT [None]
